FAERS Safety Report 21826511 (Version 1)
Quarter: 2023Q1

REPORT INFORMATION
  Report Type: Spontaneous
  Country: PL (occurrence: PL)
  Receive Date: 20230106
  Receipt Date: 20230106
  Transmission Date: 20230418
  Serious: Yes (Hospitalization, Other)
  Sender: FDA-Public Use
  Company Number: PL-URPL-DML-MLP.4401.1.1098.2021

PATIENT
  Age: 19 Year
  Sex: Female
  Weight: 80 kg

DRUGS (1)
  1. QUETIAPINE [Suspect]
     Active Substance: QUETIAPINE
     Indication: Product used for unknown indication
     Dosage: 1600 MILLIGRAM
     Route: 048
     Dates: start: 20210220

REACTIONS (4)
  - Suicide attempt [Recovering/Resolving]
  - Depressed mood [Recovering/Resolving]
  - Tachycardia [Recovering/Resolving]
  - Somnolence [Recovering/Resolving]
